FAERS Safety Report 12115681 (Version 2)
Quarter: 2016Q2

REPORT INFORMATION
  Report Type: Spontaneous
  Country: US (occurrence: US)
  Receive Date: 20160225
  Receipt Date: 20160405
  Transmission Date: 20160815
  Serious: Yes (Death, Other)
  Sender: FDA-Public Use
  Company Number: US-GLAXOSMITHKLINE-US2016026407

PATIENT
  Age: 83 Year
  Sex: Female

DRUGS (1)
  1. ADVAIR DISKUS [Suspect]
     Active Substance: FLUTICASONE PROPIONATE\SALMETEROL XINAFOATE
     Indication: ASTHMA
     Dosage: 1 PUFF(S), BID
     Route: 055

REACTIONS (6)
  - Pulmonary oedema [Fatal]
  - Aspiration tracheal [Fatal]
  - Asthma [Fatal]
  - Tooth disorder [Unknown]
  - Cough [Unknown]
  - Pneumonia [Fatal]

NARRATIVE: CASE EVENT DATE: 20160215
